FAERS Safety Report 5138589-X (Version None)
Quarter: 2006Q4

REPORT INFORMATION
  Report Type: 
  Country: None (occurrence: None)
  Receive Date: 20061023
  Receipt Date: 20061004
  Transmission Date: 20070319
  Serious: Yes (Other)
  Sender: FDA-Public Use
  Company Number: US200601005078

PATIENT
  Age: 46 Year
  Sex: Female
  Weight: 99.3 kg

DRUGS (26)
  1. ZYPREXA [Suspect]
     Indication: AFFECTIVE DISORDER
     Dosage: SEE IMAGE
     Dates: start: 20000215, end: 20000223
  2. ZYPREXA [Suspect]
     Indication: AFFECTIVE DISORDER
     Dosage: SEE IMAGE
     Dates: start: 20000223, end: 20010425
  3. ZYPREXA [Suspect]
     Indication: AFFECTIVE DISORDER
     Dosage: SEE IMAGE
     Dates: start: 20010425, end: 20010628
  4. ZYPREXA [Suspect]
     Indication: AFFECTIVE DISORDER
     Dosage: SEE IMAGE
     Dates: start: 20010719, end: 20011026
  5. ZYPREXA [Suspect]
     Indication: AFFECTIVE DISORDER
     Dosage: SEE IMAGE
     Dates: start: 20011026, end: 20020110
  6. ZYPREXA [Suspect]
     Indication: AFFECTIVE DISORDER
     Dosage: SEE IMAGE
     Dates: start: 20020110, end: 20020830
  7. ZYPREXA [Suspect]
     Indication: AFFECTIVE DISORDER
     Dosage: SEE IMAGE
     Dates: start: 20020830, end: 20030203
  8. ZYPREXA [Suspect]
     Indication: AFFECTIVE DISORDER
     Dosage: SEE IMAGE
     Dates: start: 20030203, end: 20040409
  9. ZYPREXA [Suspect]
     Indication: AFFECTIVE DISORDER
     Dosage: SEE IMAGE
     Dates: start: 20040429, end: 20050126
  10. ZYPREXA [Suspect]
     Indication: AFFECTIVE DISORDER
     Dosage: SEE IMAGE
     Dates: start: 20050126, end: 20050916
  11. ZYPREXA [Suspect]
     Indication: AFFECTIVE DISORDER
     Dosage: SEE IMAGE
     Dates: start: 20051007, end: 20051021
  12. ALPRAZOLAM [Concomitant]
  13. THIORIDAZINE HCL [Concomitant]
  14. LIPITOR [Concomitant]
  15. QUETIAPINE FUMARATE [Concomitant]
  16. AMANTADINE HCL [Concomitant]
  17. LISINOPRIL [Concomitant]
  18. PROMETHAZINE [Concomitant]
  19. MIDRIN (DICHLORALPHENAZONE, ISOMETHEPTENE, PARACETAMOL) [Concomitant]
  20. AXERT [Concomitant]
  21. QUININE SULFATE [Concomitant]
  22. SERTRALINE [Concomitant]
  23. ASPIRIN [Concomitant]
  24. MVI (VITAMINS NOS) [Concomitant]
  25. ASCORBIC ACID [Concomitant]
  26. ALTACE [Concomitant]

REACTIONS (8)
  - ABDOMINAL PAIN LOWER [None]
  - BLOOD GLUCOSE INCREASED [None]
  - DIABETES MELLITUS NON-INSULIN-DEPENDENT [None]
  - DRUG WITHDRAWAL SYNDROME [None]
  - GASTROINTESTINAL HAEMORRHAGE [None]
  - PRESCRIBED OVERDOSE [None]
  - RECTAL HAEMORRHAGE [None]
  - WEIGHT INCREASED [None]
